FAERS Safety Report 23486109 (Version 2)
Quarter: 2024Q1

REPORT INFORMATION
  Report Type: Spontaneous
  Country: ES (occurrence: ES)
  Receive Date: 20240206
  Receipt Date: 20240216
  Transmission Date: 20240410
  Serious: Yes (Other)
  Sender: FDA-Public Use
  Company Number: ES-UCBSA-2024005546

PATIENT
  Sex: Male
  Weight: 100 kg

DRUGS (3)
  1. FINTEPLA [Suspect]
     Active Substance: FENFLURAMINE
     Indication: Lennox-Gastaut syndrome
     Dosage: 26 MILLIGRAM/ DAY (6 ML)
  2. FINTEPLA [Suspect]
     Active Substance: FENFLURAMINE
     Dosage: 4.5 MILLILITER (10 MG) AT EACH DOSE
  3. FINTEPLA [Suspect]
     Active Substance: FENFLURAMINE
     Dosage: LOWERED DOSE 8 ML

REACTIONS (1)
  - Seizure [Unknown]
